FAERS Safety Report 13675555 (Version 1)
Quarter: 2017Q2

REPORT INFORMATION
  Report Type: Spontaneous
  Country: ES (occurrence: ES)
  Receive Date: 20170621
  Receipt Date: 20170621
  Transmission Date: 20170830
  Serious: Yes (Other)
  Sender: FDA-Public Use
  Company Number: ES-BEXIMCO-2017BEX00012

PATIENT

DRUGS (6)
  1. UNSPECIFIED BETA-BLOCKERS [Concomitant]
     Indication: CONGESTIVE CARDIOMYOPATHY
     Route: 065
  2. UNSPECIFIED ANGIOTENSIN RECEPTOR BLOCKER (ARB) [Concomitant]
     Indication: CONGESTIVE CARDIOMYOPATHY
     Route: 065
  3. METFORMIN HYDROCHLORIDE. [Suspect]
     Active Substance: METFORMIN HYDROCHLORIDE
     Indication: TYPE 2 DIABETES MELLITUS
     Dosage: 850 MG ^B.D.^
     Route: 048
  4. METFORMIN HYDROCHLORIDE. [Suspect]
     Active Substance: METFORMIN HYDROCHLORIDE
     Dosage: 850 MG ^T.D.^
     Route: 048
  5. EPLERENONE. [Concomitant]
     Active Substance: EPLERENONE
     Indication: CONGESTIVE CARDIOMYOPATHY
     Route: 065
  6. SACUBITRIL/VALSARTAN [Suspect]
     Active Substance: SACUBITRIL\VALSARTAN
     Indication: CONGESTIVE CARDIOMYOPATHY
     Dosage: 24/26 MG ^B.D.^
     Route: 065

REACTIONS (2)
  - Drug interaction [Unknown]
  - Diabetes mellitus inadequate control [Recovering/Resolving]
